FAERS Safety Report 19042277 (Version 1)
Quarter: 2021Q1

REPORT INFORMATION
  Report Type: Spontaneous
  Country: GB (occurrence: GB)
  Receive Date: 20210323
  Receipt Date: 20210323
  Transmission Date: 20210420
  Serious: Yes (Other)
  Sender: FDA-Public Use
  Company Number: GB-ACCORD-220184

PATIENT
  Age: 71 Year
  Sex: Male
  Weight: 87 kg

DRUGS (3)
  1. LUPRON DEPOT [Suspect]
     Active Substance: LEUPROLIDE ACETATE
     Indication: PRODUCT USED FOR UNKNOWN INDICATION
     Route: 051
     Dates: end: 202010
  2. EDOXABAN [Concomitant]
     Active Substance: EDOXABAN TOSYLATE
  3. BICALUTAMIDE. [Suspect]
     Active Substance: BICALUTAMIDE
     Indication: PROSTATE CANCER
     Route: 048
     Dates: end: 202010

REACTIONS (2)
  - Loss of consciousness [Recovered/Resolved with Sequelae]
  - Palpitations [Recovered/Resolved with Sequelae]
